FAERS Safety Report 21789320 (Version 1)
Quarter: 2022Q4

REPORT INFORMATION
  Report Type: Spontaneous
  Country: CA (occurrence: CA)
  Receive Date: 20221228
  Receipt Date: 20221228
  Transmission Date: 20230113
  Serious: Yes (Other)
  Sender: FDA-Public Use
  Company Number: CA-ORGANON-O2212CAN001866

PATIENT
  Sex: Female

DRUGS (1)
  1. NEXPLANON [Suspect]
     Active Substance: ETONOGESTREL
     Indication: Contraceptive implant
     Dosage: 1 IMPLANT OF 68 MG
     Route: 059
     Dates: start: 20221215

REACTIONS (2)
  - Vulval abscess [Unknown]
  - Headache [Unknown]

NARRATIVE: CASE EVENT DATE: 20221218
